FAERS Safety Report 5524629-2 (Version None)
Quarter: 2007Q4

REPORT INFORMATION
  Report Type: 
  Country: None (occurrence: None)
  Receive Date: 20071123
  Receipt Date: 20071121
  Transmission Date: 20080405
  Serious: Yes (Hospitalization, Other)
  Sender: FDA-Public Use
  Company Number: US-SHR-US-2007-014922

PATIENT
  Age: 53 Year
  Sex: Female
  Weight: 58.05 kg

DRUGS (14)
  1. BETASERON [Suspect]
     Indication: MULTIPLE SCLEROSIS
     Dosage: 8 MIU, EVERY 2D
     Route: 058
     Dates: start: 20070423
  2. CLONAZEPAM [Suspect]
     Dosage: 2 MG, 4X/DAY
     Route: 048
     Dates: end: 20070401
  3. CLONAZEPAM [Suspect]
     Dosage: 1 MG, 2X/DAY
     Route: 048
     Dates: start: 20070428
  4. ANXIOLYTICS [Concomitant]
     Indication: ANXIETY
     Dosage: UNK TAB(S), UNK
     Route: 048
  5. THYROID PREPARATIONS [Concomitant]
     Indication: THYROID DISORDER
  6. CARDIOVASCULAR SYSTEM DRUGS [Concomitant]
  7. ANTIDEPRESSANTS [Concomitant]
     Indication: DEPRESSION
  8. LEXAPRO [Concomitant]
     Indication: DEPRESSION
     Dosage: 20 MG/D, UNK
     Route: 048
     Dates: start: 20070101
  9. PLAVIX [Concomitant]
     Dosage: 75 MG/D, UNK
     Route: 048
     Dates: start: 20050101
  10. IBUPROFEN TABLETS [Concomitant]
     Dosage: 600 MG/D, UNK
     Route: 048
  11. SIMVASTATIN [Concomitant]
     Dosage: 20 MG/D, UNK
     Route: 048
  12. LEVOTHYROXINE SODIUM [Concomitant]
     Dosage: .05 MG/D, UNK
     Route: 048
  13. KAVAIN [Concomitant]
     Indication: BACK PAIN
     Route: 048
  14. FOSAMAX [Concomitant]
     Dosage: 70 MG, 1X/WEEK
     Route: 048

REACTIONS (17)
  - ABNORMAL BEHAVIOUR [None]
  - AGGRESSION [None]
  - ANXIETY [None]
  - CLAUSTROPHOBIA [None]
  - CONVULSION [None]
  - DENTAL CARIES [None]
  - DENTAL NECROSIS [None]
  - DISORIENTATION [None]
  - DIZZINESS [None]
  - DYSARTHRIA [None]
  - FATIGUE [None]
  - FEELING ABNORMAL [None]
  - HYPERSOMNIA [None]
  - HYPOAESTHESIA [None]
  - LOSS OF CONSCIOUSNESS [None]
  - OVERDOSE [None]
  - STRESS [None]
